FAERS Safety Report 7072654-5 (Version None)
Quarter: 2010Q4

REPORT INFORMATION
  Report Type: 
  Country: None (occurrence: None)
  Receive Date: 20101029
  Receipt Date: 20100401
  Transmission Date: 20110411
  Serious: No
  Sender: FDA-Public Use
  Company Number: A0846255A

PATIENT
  Age: 87 Year
  Sex: Male

DRUGS (14)
  1. ADVAIR DISKUS 100/50 [Suspect]
     Indication: CHRONIC OBSTRUCTIVE PULMONARY DISEASE
     Dosage: 1PUFF PER DAY
     Route: 055
     Dates: start: 20091201, end: 20100120
  2. PRILOSEC [Concomitant]
  3. LISINOPRIL [Concomitant]
  4. MULTIVITAMIN [Concomitant]
  5. EFFEXOR [Concomitant]
  6. CALCIUM + D [Concomitant]
  7. CENTRUM SILVER [Concomitant]
  8. POTASSIUM NITRATE [Concomitant]
  9. SIMVASTATIN [Concomitant]
  10. IBANDRONATE SODIUM [Concomitant]
  11. OXYGEN [Concomitant]
  12. LACTAID [Concomitant]
  13. IMODIUM [Concomitant]
  14. PROAIR HFA [Concomitant]

REACTIONS (3)
  - COUGH [None]
  - PRODUCT QUALITY ISSUE [None]
  - TREATMENT NONCOMPLIANCE [None]
